FAERS Safety Report 7765918-0 (Version None)
Quarter: 2011Q3

REPORT INFORMATION
  Report Type: 
  Country: None (occurrence: None)
  Receive Date: 20110921
  Receipt Date: 20110919
  Transmission Date: 20111222
  Serious: Yes (Other)
  Sender: FDA-Public Use
  Company Number: SE-ABBOTT-11P-150-0855576-00

PATIENT
  Sex: Female

DRUGS (1)
  1. HUMIRA [Suspect]
     Indication: CROHN'S DISEASE
     Dates: end: 20101211

REACTIONS (5)
  - HYPERSENSITIVITY [None]
  - DIABETES MELLITUS [None]
  - MUSCLE SPASMS [None]
  - VENOUS THROMBOSIS LIMB [None]
  - HEPATIC CIRRHOSIS [None]
